FAERS Safety Report 8824908 (Version 2)
Quarter: 2012Q4

REPORT INFORMATION
  Report Type: Report from Study
  Country: JP (occurrence: JP)
  Receive Date: 20121004
  Receipt Date: 20121108
  Transmission Date: 20130627
  Serious: Yes (Hospitalization)
  Sender: FDA-Public Use
  Company Number: JP-009507513-1208JPN006967

PATIENT
  Age: 49 Year
  Sex: Female
  Weight: 58 kg

DRUGS (23)
  1. PEGINTRON [Suspect]
     Indication: HEPATITIS C
     Dosage: 1.3 Microgram per kilogram, qw
     Route: 058
     Dates: start: 20120125, end: 20120229
  2. PEGINTRON [Suspect]
     Dosage: 1.5 Microgram per kilogram, UNK
     Route: 058
     Dates: start: 20120314
  3. PEGINTRON [Suspect]
     Dosage: 1.5 Microgram per kilogram, qw
     Route: 058
     Dates: start: 20120425
  4. PEGINTRON [Suspect]
     Dosage: 40 Microgram per kilogram, qw
     Route: 058
     Dates: start: 20120502, end: 20120502
  5. PEGINTRON [Suspect]
     Dosage: 60 Microgram per kilogram, qw
     Route: 058
     Dates: start: 20120509, end: 20120606
  6. PEGINTRON [Suspect]
     Dosage: 80 Microgram per kilogram, qw
     Route: 058
     Dates: start: 20120613, end: 20120704
  7. REBETOL [Suspect]
     Indication: HEPATITIS C
     Dosage: 800 mg, qd
     Route: 048
     Dates: start: 20120125, end: 20120228
  8. REBETOL [Suspect]
     Dosage: 400 mg, qd
     Route: 048
     Dates: start: 20120229, end: 20120305
  9. REBETOL [Suspect]
     Dosage: 800 mg, qd
     Route: 048
     Dates: start: 20120314, end: 20120711
  10. TELAVIC [Suspect]
     Indication: HEPATITIS C
     Dosage: 2250 mg, qd
     Route: 048
     Dates: start: 20120125, end: 20120301
  11. TELAVIC [Suspect]
     Dosage: 1500 mg, qd
     Route: 048
     Dates: start: 20120302, end: 20120302
  12. LEXAPRO [Suspect]
     Indication: DEPRESSION
     Dosage: 10 mg, qd
     Route: 048
     Dates: end: 20120505
  13. DESYREL [Suspect]
     Indication: DEPRESSION
     Dosage: 50 mg, qd
     Route: 048
     Dates: end: 20120430
  14. MUCOSTA [Concomitant]
     Indication: GASTRITIS
     Dosage: 300 mg, qd
     Route: 048
  15. LOXONIN [Concomitant]
     Indication: BACK PAIN
     Dosage: UNK UNK, prn
     Route: 048
  16. APHTASOLON [Concomitant]
     Indication: STOMATITIS
     Dosage: UNK UNK, prn
     Route: 051
     Dates: start: 20120215, end: 20120222
  17. HACHIAZULE GARGLE [Concomitant]
     Indication: PHARYNGITIS
     Dosage: UNK, prn
     Route: 051
     Dates: start: 20120222, end: 20120229
  18. NAUZELIN [Concomitant]
     Indication: DIARRHOEA
     Dosage: 3 DF, qd
     Route: 048
     Dates: start: 20120522, end: 20120526
  19. NAUZELIN [Concomitant]
     Indication: VOMITING
  20. LAC-B [Concomitant]
     Indication: DIARRHOEA
     Dosage: 3 g, qd
     Route: 048
     Dates: start: 20120522, end: 20120526
  21. PRIMPERAN [Concomitant]
     Indication: VOMITING
     Dosage: 1 mg, qd
     Route: 042
     Dates: start: 20120522, end: 20120523
  22. VITAMEDIN [Concomitant]
     Indication: PROPHYLAXIS
     Dosage: 3 DF, qd
     Route: 048
     Dates: start: 20120629, end: 20120711
  23. PURSENNID (SENNOSIDES) [Concomitant]
     Indication: CONSTIPATION
     Dosage: UNK, prn
     Route: 048

REACTIONS (2)
  - Dizziness [Recovering/Resolving]
  - Asthenia [Recovering/Resolving]
